FAERS Safety Report 7799589 (Version 5)
Quarter: 2015Q4

REPORT INFORMATION
  Report Type: Report from Study
  Country: AU (occurrence: AU)
  Receive Date: 20110204
  Receipt Date: 20151214
  Transmission Date: 20160305
  Serious: Yes (Hospitalization)
  Sender: FDA-Public Use
  Company Number: PHHY2011AU05085

PATIENT
  Age: 37 Year
  Sex: Male

DRUGS (4)
  1. CLOZARIL [Suspect]
     Active Substance: CLOZAPINE
     Indication: SCHIZOPHRENIA
     Dosage: 500 OT
     Route: 048
     Dates: start: 20050315
  2. CLOZARIL [Suspect]
     Active Substance: CLOZAPINE
     Dosage: 600 MG
     Route: 048
     Dates: start: 20120511
  3. CLOZARIL [Suspect]
     Active Substance: CLOZAPINE
     Dosage: 550 OT
     Route: 048
     Dates: start: 20050315, end: 201012
  4. CLOZARIL [Suspect]
     Active Substance: CLOZAPINE
     Dosage: 600 OT
     Route: 048
     Dates: start: 20031006

REACTIONS (3)
  - Schizophrenia [Unknown]
  - Antipsychotic drug level below therapeutic [Unknown]
  - Psychotic disorder [Unknown]

NARRATIVE: CASE EVENT DATE: 201012
